FAERS Safety Report 25748468 (Version 1)
Quarter: 2025Q3

REPORT INFORMATION
  Report Type: Report from Study
  Country: EU (occurrence: EU)
  Receive Date: 20250902
  Receipt Date: 20250902
  Transmission Date: 20251021
  Serious: Yes (Congenital Anomaly, Other)
  Sender: Haleon PLC
  Company Number: EU-HALEON-2223109

PATIENT

DRUGS (1)
  1. DICLOFENAC [Suspect]
     Active Substance: DICLOFENAC
     Indication: Rheumatoid arthritis
     Route: 064

REACTIONS (3)
  - Talipes [Unknown]
  - Foetal exposure during pregnancy [Unknown]
  - Premature baby [Unknown]
